FAERS Safety Report 10153983 (Version 1)
Quarter: 2014Q2

REPORT INFORMATION
  Report Type: Spontaneous
  Country: US (occurrence: US)
  Receive Date: 20140506
  Receipt Date: 20140506
  Transmission Date: 20141212
  Serious: No
  Sender: FDA-Public Use
  Company Number: US-009507513-1404USA006657

PATIENT
  Age: 18 Year
  Sex: Female
  Weight: 45.35 kg

DRUGS (3)
  1. IMPLANON [Suspect]
     Indication: CONTRACEPTION
     Dosage: 1 ROD FOR 3 YEARS, IN THE LEFT ARM
     Route: 059
     Dates: start: 20120716
  2. IMPLANON [Suspect]
     Indication: MENSTRUATION IRREGULAR
  3. PROVENTIL [Concomitant]
     Indication: ASTHMA

REACTIONS (3)
  - Cyst [Unknown]
  - Menorrhagia [Not Recovered/Not Resolved]
  - Metrorrhagia [Unknown]
